FAERS Safety Report 5798307-9 (Version None)
Quarter: 2008Q2

REPORT INFORMATION
  Report Type: 
  Country: None (occurrence: None)
  Receive Date: 20080630
  Receipt Date: 20080611
  Transmission Date: 20081010
  Serious: Yes (Disabling)
  Sender: FDA-Public Use
  Company Number: 19583

PATIENT
  Sex: Female

DRUGS (1)
  1. PACLITAXEL [Suspect]

REACTIONS (1)
  - PARAESTHESIA [None]
